FAERS Safety Report 10206115 (Version 1)
Quarter: 2014Q2

REPORT INFORMATION
  Report Type: Spontaneous
  Country: US (occurrence: US)
  Receive Date: 20140530
  Receipt Date: 20140530
  Transmission Date: 20141212
  Serious: No
  Sender: FDA-Public Use
  Company Number: US-PFIZER INC-2014146386

PATIENT
  Age: 72 Year
  Sex: Male
  Weight: 68.03 kg

DRUGS (7)
  1. GABAPENTIN [Suspect]
     Indication: DIABETIC NEUROPATHY
     Dosage: ONE 300 MG CAPSULE IN THE MORNING, ONE 300 MG CAPSULE AT NOON AND 600 MG AT BED TIME, 3X/DAY
     Route: 048
  2. GABAPENTIN [Suspect]
     Dosage: 300 MG, 2X/DAY
     Route: 048
  3. AMITRIPTYLINE [Concomitant]
     Indication: DEPRESSION
     Dosage: UNK
  4. GLIMEPIRIDE [Concomitant]
     Dosage: 1 MG, DAILY
  5. ATENOLOL [Concomitant]
     Dosage: 25 MG, DAILY
  6. LEVOTHYROXINE [Concomitant]
     Dosage: 150 UG, DAILY
  7. SIMVASTATIN [Concomitant]
     Dosage: 40 MG, DAILY

REACTIONS (2)
  - Diabetic neuropathy [Unknown]
  - Disease progression [Unknown]
